FAERS Safety Report 23245566 (Version 2)
Quarter: 2023Q4

REPORT INFORMATION
  Report Type: Report from Study
  Country: US (occurrence: US)
  Receive Date: 20231130
  Receipt Date: 20231205
  Transmission Date: 20240109
  Serious: No
  Sender: FDA-Public Use
  Company Number: US-002147023-NVSC2023US251066

PATIENT
  Sex: Female

DRUGS (1)
  1. ENTRESTO [Suspect]
     Active Substance: SACUBITRIL\VALSARTAN
     Indication: Paternal exposure during pregnancy
     Dosage: EXPOSUREV VIA PARTNER (PATERNAL DOSE: UNKNOWN DOSE FROM ON UNKNOWN DATE IN 2021)
     Route: 050

REACTIONS (1)
  - Maternal exposure during pregnancy [Unknown]
